FAERS Safety Report 4803658-8 (Version None)
Quarter: 2005Q4

REPORT INFORMATION
  Report Type: 
  Country: None (occurrence: None)
  Receive Date: 20051014
  Receipt Date: 20051005
  Transmission Date: 20060501
  Serious: Yes (Life-Threatening)
  Sender: FDA-Public Use
  Company Number: GXKR2005JP01757

PATIENT
  Age: 69 Year
  Sex: Male

DRUGS (2)
  1. RIMACTANE [Suspect]
     Indication: PULMONARY TUBERCULOSIS
     Dosage: ORAL
     Route: 048
  2. AMIODARONE HCL [Suspect]
     Indication: VENTRICULAR TACHYCARDIA

REACTIONS (2)
  - DRUG INTERACTION [None]
  - VENTRICULAR TACHYCARDIA [None]
